FAERS Safety Report 12717223 (Version 1)
Quarter: 2016Q3

REPORT INFORMATION
  Report Type: Spontaneous
  Country: US (occurrence: US)
  Receive Date: 20160906
  Receipt Date: 20160906
  Transmission Date: 20161109
  Serious: Yes (Hospitalization)
  Sender: FDA-Public Use
  Company Number: None

PATIENT
  Age: 42 Year
  Sex: Male
  Weight: 75.6 kg

DRUGS (1)
  1. CLINDAMYCIN HCL 150 MG CAPSULE AUROB INDO PHARM [Suspect]
     Active Substance: CLINDAMYCIN HYDROCHLORIDE
     Indication: TOOTH INFECTION
     Route: 048
     Dates: start: 20160801, end: 20160812

REACTIONS (15)
  - Skin discolouration [None]
  - Gait disturbance [None]
  - Rash [None]
  - Blood glucose increased [None]
  - Arthralgia [None]
  - Ocular hyperaemia [None]
  - Pruritus [None]
  - Pain [None]
  - Heart rate increased [None]
  - Diarrhoea [None]
  - Pain in extremity [None]
  - White blood cell count increased [None]
  - Abdominal pain upper [None]
  - Vomiting [None]
  - Urticaria [None]

NARRATIVE: CASE EVENT DATE: 20160811
